FAERS Safety Report 21555050 (Version 1)
Quarter: 2022Q4

REPORT INFORMATION
  Report Type: Spontaneous
  Country: US (occurrence: None)
  Receive Date: 20221103
  Receipt Date: 20221103
  Transmission Date: 20230113
  Serious: Yes (Other)
  Sender: FDA-Public Use
  Company Number: None

PATIENT
  Age: 72 Year
  Sex: Female
  Weight: 99 kg

DRUGS (11)
  1. PAXLOVID [Suspect]
     Active Substance: NIRMATRELVIR\RITONAVIR
     Indication: COVID-19
     Dosage: FREQUENCY : TWICE A DAY;?
     Route: 048
     Dates: start: 20221101, end: 20221103
  2. VITAMINS [Concomitant]
     Active Substance: VITAMINS
     Dates: start: 20120101
  3. VITAMIN B12 [Concomitant]
     Active Substance: CYANOCOBALAMIN
     Dates: start: 20120101
  4. VITAMIN E [Concomitant]
     Active Substance: .ALPHA.-TOCOPHEROL
     Dates: start: 20180101
  5. Fossamax [Concomitant]
     Dates: start: 20180101
  6. CALCIUM [Concomitant]
     Active Substance: CALCIUM
     Dates: start: 20120101
  7. VITAMIN D3 [Concomitant]
     Active Substance: CHOLECALCIFEROL
     Dates: start: 20120101
  8. LOSARTAN [Concomitant]
     Active Substance: LOSARTAN
     Dates: start: 20120101
  9. LEXAPRO [Concomitant]
     Active Substance: ESCITALOPRAM OXALATE
     Dates: start: 20120101
  10. TRAZODONE [Concomitant]
     Active Substance: TRAZODONE HYDROCHLORIDE
     Dates: start: 20120101
  11. ABILIFY [Concomitant]
     Active Substance: ARIPIPRAZOLE
     Dates: start: 20220501

REACTIONS (1)
  - Oral pruritus [None]

NARRATIVE: CASE EVENT DATE: 20221102
